FAERS Safety Report 23119266 (Version 1)
Quarter: 2023Q4

REPORT INFORMATION
  Report Type: Spontaneous
  Country: ES (occurrence: ES)
  Receive Date: 20231028
  Receipt Date: 20231028
  Transmission Date: 20240110
  Serious: Yes (Death, Other)
  Sender: FDA-Public Use
  Company Number: None

PATIENT
  Age: 70 Year
  Sex: Male
  Weight: 104 kg

DRUGS (9)
  1. ALLOPURINOL [Suspect]
     Active Substance: ALLOPURINOL
     Indication: Hyperuricaemia
     Dosage: 300 MILLIGRAM DAILY; 300 MG, QD, ALOPURINOL (318A)
     Dates: start: 20150911, end: 20230508
  2. LAMOTRIGINE [Suspect]
     Active Substance: LAMOTRIGINE
     Indication: Neuralgia
     Dosage: LAMOTRIGINA (2579A)
     Dates: start: 20230427, end: 20230512
  3. IOMERON [Suspect]
     Active Substance: IOMEPROL
     Indication: Computerised tomogram
     Dosage: IOMERON 350 MG IODINE/ML INJECTABLE SOLUTION
     Dates: start: 20230503, end: 20230503
  4. AMOXICILLIN\CLAVULANIC ACID [Suspect]
     Active Substance: AMOXICILLIN\CLAVULANIC ACID
     Indication: Rash maculo-papular
     Dosage: 2625375 MILLIGRAM DAILY; UNK UNK, Q8H (26253 MILLIGRAM(S) (875125 MILLIGRAM(S), 1 IN 8 HOUR)), AMOXI
     Dates: start: 20230507, end: 20230514
  5. DEXKETOPROFEN TROMETAMOL [Suspect]
     Active Substance: DEXKETOPROFEN TROMETAMOL
     Indication: Pain
     Dosage: 150 MILLIGRAM DAILY; 50 MG, Q8H
     Dates: start: 20230430, end: 20230502
  6. METAMIZOLE MAGNESIUM [Suspect]
     Active Substance: METAMIZOLE MAGNESIUM
     Indication: Pain
     Dosage: 2 G, TOTAL
     Dates: start: 20230514, end: 20230514
  7. METFORMIN HYDROCHLORIDE [Concomitant]
     Active Substance: METFORMIN HYDROCHLORIDE
     Indication: Diabetes mellitus
     Dosage: 1000 MILLIGRAM DAILY; 1000 MG, QD, METFORMINA (1359A)
     Dates: start: 20200616, end: 20230430
  8. SITAGLIPTIN [Concomitant]
     Active Substance: SITAGLIPTIN
     Indication: Diabetes mellitus
     Dosage: 50 MILLIGRAM DAILY; 50 MG, QD,  SITAGLIPTINA (8075A)
     Dates: start: 20200616, end: 20230430
  9. DAPAGLIFLOZIN [Concomitant]
     Active Substance: DAPAGLIFLOZIN
     Indication: Diabetes mellitus
     Dosage: 10 MILLIGRAM DAILY; 10 MG, QD, DAPAGLIFLOZINA (8615A)
     Dates: start: 20200616, end: 20230430

REACTIONS (2)
  - Toxic epidermal necrolysis [Fatal]
  - Upper gastrointestinal haemorrhage [Fatal]

NARRATIVE: CASE EVENT DATE: 20230521
